FAERS Safety Report 7742556-7 (Version None)
Quarter: 2011Q3

REPORT INFORMATION
  Report Type: 
  Country: None (occurrence: None)
  Receive Date: 20110912
  Receipt Date: 20110830
  Transmission Date: 20111222
  Serious: Yes (Hospitalization, Other)
  Sender: FDA-Public Use
  Company Number: US-BAYER-2011-027851

PATIENT
  Age: 17 Year
  Sex: Female

DRUGS (3)
  1. IBUPROFEN [Concomitant]
     Indication: MUSCLE SPASMS
  2. IBUPROFEN [Concomitant]
     Indication: PAIN
     Dosage: 750 MG, UNK
     Route: 048
     Dates: start: 20100301, end: 20100901
  3. YAZ [Suspect]
     Indication: CONTRACEPTION
     Dosage: UNK
     Dates: start: 20080901, end: 20100901

REACTIONS (9)
  - INJURY [None]
  - GALLBLADDER DISORDER [None]
  - PAIN [None]
  - DIARRHOEA [None]
  - ANHEDONIA [None]
  - GENERAL PHYSICAL HEALTH DETERIORATION [None]
  - DYSPEPSIA [None]
  - EMOTIONAL DISTRESS [None]
  - ANXIETY [None]
